FAERS Safety Report 15644705 (Version 1)
Quarter: 2018Q4

REPORT INFORMATION
  Report Type: Report from Study
  Country: JP (occurrence: JP)
  Receive Date: 20181121
  Receipt Date: 20181121
  Transmission Date: 20190205
  Serious: Yes (Hospitalization, Other)
  Sender: FDA-Public Use
  Company Number: JP-SA-2018SA315267

PATIENT
  Age: 72 Year
  Sex: Male

DRUGS (6)
  1. DARBEPOETIN ALFA RECOMBINANT [Suspect]
     Active Substance: DARBEPOETIN ALFA
     Dosage: UNK
     Route: 042
     Dates: start: 20151117, end: 20160204
  2. CINACALCET HYDROCHLORIDE. [Suspect]
     Active Substance: CINACALCET HYDROCHLORIDE
     Indication: PRODUCT USED FOR UNKNOWN INDICATION
     Dosage: UNK
     Route: 048
     Dates: start: 20150531, end: 20160627
  3. DARBEPOETIN ALFA RECOMBINANT [Suspect]
     Active Substance: DARBEPOETIN ALFA
     Indication: PRODUCT USED FOR UNKNOWN INDICATION
     Dosage: UNK
     Route: 042
     Dates: start: 20131022, end: 20150917
  4. SEVELAMER HYDROCHLORIDE. [Suspect]
     Active Substance: SEVELAMER HYDROCHLORIDE
     Indication: PRODUCT USED FOR UNKNOWN INDICATION
     Dosage: UNK
     Route: 048
     Dates: start: 20150531, end: 20150917
  5. DARBEPOETIN ALFA RECOMBINANT [Suspect]
     Active Substance: DARBEPOETIN ALFA
     Dosage: UNK
     Route: 042
     Dates: start: 20170214, end: 20180415
  6. DARBEPOETIN ALFA RECOMBINANT [Suspect]
     Active Substance: DARBEPOETIN ALFA
     Dosage: UNK
     Route: 042
     Dates: start: 20150922, end: 20151112

REACTIONS (3)
  - Hospitalisation [Recovering/Resolving]
  - Arteriovenous fistula site complication [Recovering/Resolving]
  - Hospitalisation [Recovering/Resolving]

NARRATIVE: CASE EVENT DATE: 20170529
